FAERS Safety Report 17216169 (Version 2)
Quarter: 2019Q4

REPORT INFORMATION
  Report Type: Report from Study
  Country: PL (occurrence: PL)
  Receive Date: 20191230
  Receipt Date: 20191230
  Transmission Date: 20200122
  Serious: Yes (Hospitalization)
  Sender: FDA-Public Use
  Company Number: PL-ZPPROD-ZP19PL000073

PATIENT

DRUGS (24)
  1. THIAMINE. [Concomitant]
     Active Substance: THIAMINE
     Dosage: 100 MILLIGRAM, 4 TIMES PER WEEK
     Dates: start: 20190409
  2. THIAMINE. [Concomitant]
     Active Substance: THIAMINE
     Dosage: 100 MILLIGRAM, 3 TIMES PER WEEK
     Route: 042
     Dates: start: 20190523
  3. NUTRYELT [Concomitant]
     Active Substance: IRON\MINERALS\POTASSIUM IOD\SODIUM FLUORIDE\SODIUM MOLYBDATE\SODIUM SELENITE\ZINC
     Dosage: 10 MILLILITER, 5 TIMES PER WEEK
     Route: 042
     Dates: start: 20190314, end: 20190408
  4. CERNEVIT [Concomitant]
     Active Substance: VITAMINS
     Indication: VITAMIN SUPPLEMENTATION
     Dosage: 1 DOSAGE FORM, 6 TIMES PER WEEK
     Route: 042
     Dates: start: 20190108, end: 20190313
  5. CERNEVIT [Concomitant]
     Active Substance: VITAMINS
     Dosage: 1 DOSAGE FORM, 5 TIMES PER WEEK
     Route: 042
     Dates: start: 20190314, end: 20190408
  6. THIAMINE. [Concomitant]
     Active Substance: THIAMINE
     Dosage: 100 MILLIGRAM, 6 TIMES PER WEEK
     Route: 042
     Dates: start: 20190108, end: 20190313
  7. GLYCOPHOS [Concomitant]
     Active Substance: SODIUM GLYCEROPHOSPHATE ANHYDROUS
     Dosage: 20 MILLILITER, 4 TIMES PER WEEK
     Route: 042
     Dates: start: 20190409
  8. RANITIDINE. [Concomitant]
     Active Substance: RANITIDINE
     Indication: PROPHYLAXIS
     Dosage: 100 MILLIGRAM, 6 TIMES PER WEEK
     Route: 042
     Dates: start: 20190108, end: 20190313
  9. MILURIT [Concomitant]
     Active Substance: ALLOPURINOL
     Dosage: 100 MILLIGRAM, QD
     Route: 048
     Dates: start: 20190814
  10. CERNEVIT [Concomitant]
     Active Substance: VITAMINS
     Dosage: 1 DOSAGE FORM, 3 TIMES PER WEEK
     Route: 042
     Dates: start: 20190523
  11. GLYCOPHOS [Concomitant]
     Active Substance: SODIUM GLYCEROPHOSPHATE ANHYDROUS
     Dosage: 20 MILLILITER, 5 TIMES PER WEEK
     Route: 042
     Dates: start: 20190314, end: 20190408
  12. GLEPAGLUTIDE - TW [Suspect]
     Active Substance: GLEPAGLUTIDE
     Dosage: 10 MILLIGRAM TWICE WEEKLY
     Route: 058
     Dates: start: 20190801
  13. NUTRYELT [Concomitant]
     Active Substance: IRON\MINERALS\POTASSIUM IOD\SODIUM FLUORIDE\SODIUM MOLYBDATE\SODIUM SELENITE\ZINC
     Dosage: 10 MILLILITER, 3 TIMES PER WEEK
     Route: 042
     Dates: start: 20190523
  14. CERNEVIT [Concomitant]
     Active Substance: VITAMINS
     Dosage: 1 DOSAGE FORM, 4 TIMES PER WEEK
     Route: 042
     Dates: start: 20190409
  15. THIAMINE. [Concomitant]
     Active Substance: THIAMINE
     Dosage: 100 MILLIGRAM, 5 TIMES PER WEEK
     Route: 042
     Dates: start: 20190314, end: 20190408
  16. RANITIDINE. [Concomitant]
     Active Substance: RANITIDINE
     Dosage: 100 MILLIGRAM, 4 TIMES PER WEEK
     Route: 042
     Dates: start: 20190409
  17. LOPERAMIDE [Concomitant]
     Active Substance: LOPERAMIDE
     Indication: SHORT-BOWEL SYNDROME
     Dosage: 2 MILLIGRAM, TID
     Route: 048
     Dates: start: 20180611
  18. NUTRYELT [Concomitant]
     Active Substance: IRON\MINERALS\POTASSIUM IOD\SODIUM FLUORIDE\SODIUM MOLYBDATE\SODIUM SELENITE\ZINC
     Dosage: 10 MILLILITER, 4 TIMES PER WEEK
     Route: 042
     Dates: start: 20190409
  19. GLYCOPHOS [Concomitant]
     Active Substance: SODIUM GLYCEROPHOSPHATE ANHYDROUS
     Dosage: 20 MILLILITER, 6 TIMES PER WEEK
     Route: 042
     Dates: start: 20190108, end: 20190313
  20. RANITIDINE. [Concomitant]
     Active Substance: RANITIDINE
     Dosage: 100 MILLIGRAM, 5 TIMES PER WEEK
     Route: 042
     Dates: start: 20190314, end: 20190408
  21. RANITIDINE. [Concomitant]
     Active Substance: RANITIDINE
     Dosage: 100 MILLIGRAM, 3 TIMES PER WEEK100 MILLIGRAM
     Route: 042
     Dates: start: 20190523, end: 20190920
  22. GLEPAGLUTIDE - TW [Suspect]
     Active Substance: GLEPAGLUTIDE
     Indication: SHORT-BOWEL SYNDROME
     Dosage: 10 MILLIGRAM TWICE WEEKLY
     Route: 058
     Dates: start: 20190214, end: 20190801
  23. NUTRYELT [Concomitant]
     Active Substance: IRON\MINERALS\POTASSIUM IOD\SODIUM FLUORIDE\SODIUM MOLYBDATE\SODIUM SELENITE\ZINC
     Dosage: 10 MILLILITER, 6 TIMES PER WEEK
     Route: 042
     Dates: start: 20190108, end: 20190313
  24. GLYCOPHOS [Concomitant]
     Active Substance: SODIUM GLYCEROPHOSPHATE ANHYDROUS
     Dosage: 20 MILLILITER, 3 TIMES PER WEEK
     Route: 042
     Dates: start: 20190523

REACTIONS (1)
  - Renal colic [Recovered/Resolved]

NARRATIVE: CASE EVENT DATE: 20191222
